FAERS Safety Report 4386595-5 (Version None)
Quarter: 2004Q2

REPORT INFORMATION
  Report Type: 
  Country: None (occurrence: None)
  Receive Date: 20040629
  Receipt Date: 20040604
  Transmission Date: 20050107
  Serious: Yes (Other)
  Sender: FDA-Public Use
  Company Number: US-GLAXOSMITHKLINE-A0513475A

PATIENT
  Age: 57 Year
  Sex: Female
  Weight: 63.6 kg

DRUGS (2)
  1. AUGMENTIN [Suspect]
     Indication: EAR INFECTION
     Dosage: 500MG THREE TIMES PER DAY
     Route: 048
  2. NO CONCURRENT MEDICATION [Concomitant]

REACTIONS (12)
  - ALANINE AMINOTRANSFERASE INCREASED [None]
  - ANOREXIA [None]
  - ASPARTATE AMINOTRANSFERASE INCREASED [None]
  - BLOOD BILIRUBIN INCREASED [None]
  - HEPATITIS [None]
  - INCREASED TENDENCY TO BRUISE [None]
  - JAUNDICE CHOLESTATIC [None]
  - LIVER FUNCTION TEST ABNORMAL [None]
  - NAUSEA [None]
  - PROTHROMBIN TIME PROLONGED [None]
  - PRURITUS [None]
  - URTICARIA [None]
